FAERS Safety Report 10914408 (Version 1)
Quarter: 2015Q1

REPORT INFORMATION
  Report Type: Spontaneous
  Country: US (occurrence: US)
  Receive Date: 20150313
  Receipt Date: 20150313
  Transmission Date: 20150721
  Serious: Yes (Hospitalization, Other)
  Sender: FDA-Public Use
  Company Number: US-GLAXOSMITHKLINE-US2015031790

PATIENT
  Sex: Female

DRUGS (23)
  1. VITAMIN E [Concomitant]
     Active Substance: .ALPHA.-TOCOPHEROL
  2. POTASSIUM [Concomitant]
     Active Substance: POTASSIUM
  3. VALTREX [Suspect]
     Active Substance: VALACYCLOVIR HYDROCHLORIDE
     Indication: STOMATITIS
     Dosage: 500 MG, BID
     Route: 048
  4. VALACYCLOVIR [Suspect]
     Active Substance: VALACYCLOVIR HYDROCHLORIDE
     Indication: STOMATITIS
  5. CALCIUM [Concomitant]
     Active Substance: CALCIUM
  6. PHENOBARBITAL. [Concomitant]
     Active Substance: PHENOBARBITAL
  7. VITAMIN D [Concomitant]
     Active Substance: CHOLECALCIFEROL
  8. EPIPEN [Concomitant]
     Active Substance: EPINEPHRINE
  9. GLYCOPYRROLATE. [Concomitant]
     Active Substance: GLYCOPYRROLATE
  10. LANSOPRAZOLE. [Concomitant]
     Active Substance: LANSOPRAZOLE
  11. LOSARTAN [Concomitant]
     Active Substance: LOSARTAN
  12. OXYTROL PATCH [Concomitant]
  13. SUCRALFATE. [Concomitant]
     Active Substance: SUCRALFATE
  14. VITAMIN B COMPLEX [Concomitant]
     Active Substance: CYANOCOBALAMIN\DEXPANTHENOL\NIACINAMIDE\PYRIDOXINE HYDROCHLORIDE\RIBOFLAVIN 5^-PHOSPHATE SODIUM\THIAMINE HYDROCHLORIDE\VITAMIN B COMPLEX
  15. VALTREX [Suspect]
     Active Substance: VALACYCLOVIR HYDROCHLORIDE
     Indication: ORAL MUCOSAL BLISTERING
     Route: 048
  16. ACIDOPHILUS [Concomitant]
     Active Substance: LACTOBACILLUS ACIDOPHILUS
  17. LYCINE [Concomitant]
  18. AMLODIPINE [Concomitant]
     Active Substance: AMLODIPINE BESYLATE
  19. ASPIRIN. [Concomitant]
     Active Substance: ASPIRIN
  20. ESTROPIPATE. [Concomitant]
     Active Substance: ESTROPIPATE
  21. HYDROCHLOROTHIAZIDE + TRIAMTERENE [Concomitant]
     Active Substance: HYDROCHLOROTHIAZIDE\TRIAMTERENE
  22. VALACYCLOVIR [Suspect]
     Active Substance: VALACYCLOVIR HYDROCHLORIDE
     Indication: ORAL MUCOSAL BLISTERING
     Dosage: 1000 MG, QD
     Dates: start: 201501
  23. RANITIDINE [Concomitant]
     Active Substance: RANITIDINE\RANITIDINE HYDROCHLORIDE

REACTIONS (4)
  - Anaphylactic shock [Recovered/Resolved]
  - Abdominal discomfort [Recovered/Resolved]
  - Recurrent cancer [Not Recovered/Not Resolved]
  - Drug ineffective [Recovered/Resolved]

NARRATIVE: CASE EVENT DATE: 2005
